FAERS Safety Report 22533467 (Version 2)
Quarter: 2023Q2

REPORT INFORMATION
  Report Type: Report from Study
  Country: US (occurrence: US)
  Receive Date: 20230608
  Receipt Date: 20230613
  Transmission Date: 20230721
  Serious: No
  Sender: FDA-Public Use
  Company Number: US-002147023-NVSC2023US127982

PATIENT
  Age: 27 Year
  Sex: Female

DRUGS (1)
  1. COSENTYX [Suspect]
     Active Substance: SECUKINUMAB
     Indication: Guttate psoriasis
     Dosage: 300 MG, QMO
     Route: 058
     Dates: start: 20230531

REACTIONS (9)
  - Psoriasis [Unknown]
  - Papule [Unknown]
  - Pruritus [Unknown]
  - Scab [Unknown]
  - Dermatitis contact [Unknown]
  - Blister [Unknown]
  - Acne [Unknown]
  - Skin exfoliation [Unknown]
  - Erythema [Unknown]

NARRATIVE: CASE EVENT DATE: 20230531
